FAERS Safety Report 20488626 (Version 4)
Quarter: 2022Q2

REPORT INFORMATION
  Report Type: Report from Study
  Country: GB (occurrence: GB)
  Receive Date: 20220218
  Receipt Date: 20220412
  Transmission Date: 20220721
  Serious: Yes (Hospitalization, Disabling, Other)
  Sender: FDA-Public Use
  Company Number: GB-CELLTRION INC.-2020GB035195

PATIENT

DRUGS (195)
  1. RITUXIMAB [Suspect]
     Active Substance: RITUXIMAB
     Indication: Mantle cell lymphoma
     Dosage: UNK
     Route: 065
     Dates: start: 20200303, end: 20200309
  2. RITUXIMAB [Suspect]
     Active Substance: RITUXIMAB
     Dosage: 1 DF, QD (1X/DAY (DOSAGE FORM: 16) LAST DOSE ADMINISTERED ON 09-MAR-2020
     Route: 041
     Dates: start: 20200309, end: 20200309
  3. RITUXIMAB [Suspect]
     Active Substance: RITUXIMAB
     Dosage: 1 DF (DOSAGE FORM: 16)
     Route: 041
     Dates: start: 20200309, end: 20200309
  4. RITUXIMAB [Suspect]
     Active Substance: RITUXIMAB
     Dosage: 1 DF, QD (1X/DAY (DOSAGE FORM: 16)
     Route: 041
     Dates: start: 20200309, end: 20200309
  5. RITUXIMAB [Suspect]
     Active Substance: RITUXIMAB
     Dosage: 1 DF (DOSE FORM:16)
     Route: 041
     Dates: start: 20200303, end: 20200309
  6. RITUXIMAB [Suspect]
     Active Substance: RITUXIMAB
     Dosage: 1 DF; PHARMACEUTICAL DOSE FORM: SOLUTION FOR INFUSION
     Route: 041
     Dates: start: 20200309
  7. RITUXIMAB [Suspect]
     Active Substance: RITUXIMAB
     Dosage: 1 DF, QD
     Route: 041
     Dates: end: 20200309
  8. RITUXIMAB [Suspect]
     Active Substance: RITUXIMAB
     Dosage: 1 DOSAGE FORMS DAILY; ADDITIONAL INFO: LAST DOSE ADMINISTERED ON 09-MAR-2020 (DOSE FORM: 16)
     Route: 041
     Dates: start: 20200309, end: 20200309
  9. RITUXIMAB [Suspect]
     Active Substance: RITUXIMAB
     Dosage: 1 DF; ADDITIONAL INFO: LAST DOSE ADMINISTERED ON 09-MAR-2020
     Route: 041
     Dates: start: 20200303, end: 20200309
  10. RITUXIMAB [Suspect]
     Active Substance: RITUXIMAB
     Dosage: 1 DF (DOSAGE FORM: 230)
     Route: 041
     Dates: start: 20200309, end: 20200309
  11. RITUXIMAB [Suspect]
     Active Substance: RITUXIMAB
     Dosage: 1 DF (DOSAGE FORM: 230)
     Route: 041
     Dates: start: 20200309, end: 20200309
  12. RITUXIMAB [Suspect]
     Active Substance: RITUXIMAB
     Dosage: 1 DF (DOSAGE FORM: 230)
     Route: 041
     Dates: start: 20200303, end: 20200309
  13. RITUXIMAB [Suspect]
     Active Substance: RITUXIMAB
     Dosage: 1 DF (DOSAGE FORM: 230)
     Route: 041
     Dates: start: 20200303, end: 20200309
  14. RITUXIMAB [Suspect]
     Active Substance: RITUXIMAB
     Dosage: DOSAGE FORM: 318
     Route: 065
     Dates: start: 20200303, end: 20200309
  15. RITUXIMAB [Suspect]
     Active Substance: RITUXIMAB
     Dosage: 1 DF, QD (DOSAGE FORM: 318)
     Route: 041
     Dates: start: 20200309, end: 20200309
  16. RITUXIMAB [Suspect]
     Active Substance: RITUXIMAB
     Dosage: 1 DF (DOSE FORM: 318)
     Route: 041
     Dates: start: 20200303, end: 20200309
  17. RITUXIMAB [Suspect]
     Active Substance: RITUXIMAB
     Dosage: 1 DF, QD (DOSE FORM: 230)
     Route: 041
     Dates: start: 20200309, end: 20200309
  18. RITUXIMAB [Suspect]
     Active Substance: RITUXIMAB
     Dosage: 318 DF (DOSE FORM: 230)
     Route: 041
     Dates: start: 20200303, end: 20200309
  19. RITUXIMAB [Suspect]
     Active Substance: RITUXIMAB
     Dosage: 318 DF (DOSE FORM: 230)
     Route: 041
     Dates: start: 20200303, end: 20200309
  20. RITUXIMAB [Suspect]
     Active Substance: RITUXIMAB
     Dosage: UNK
     Route: 041
     Dates: start: 20200303, end: 20200309
  21. RITUXIMAB [Suspect]
     Active Substance: RITUXIMAB
     Dosage: 1 DF
     Route: 041
     Dates: start: 20200309
  22. RITUXIMAB [Suspect]
     Active Substance: RITUXIMAB
     Dosage: 1 DF
     Route: 041
     Dates: start: 20200309, end: 20200309
  23. RITUXIMAB [Suspect]
     Active Substance: RITUXIMAB
     Dosage: 1 DF, QD
     Route: 041
     Dates: start: 20200309, end: 20200309
  24. RITUXIMAB [Suspect]
     Active Substance: RITUXIMAB
     Dosage: 1 DF
     Route: 041
     Dates: end: 20200309
  25. RITUXIMAB [Suspect]
     Active Substance: RITUXIMAB
     Dosage: 1 DF
     Route: 041
     Dates: start: 20200309
  26. RITUXIMAB [Suspect]
     Active Substance: RITUXIMAB
     Dosage: 1 DF (PHARMACEUTICAL DOSE FORM: 16)
     Route: 041
     Dates: start: 20200309
  27. CYTARABINE [Suspect]
     Active Substance: CYTARABINE
     Indication: Mantle cell lymphoma
     Dosage: 20 MG
     Route: 065
     Dates: start: 20200115, end: 20200303
  28. CYTARABINE [Suspect]
     Active Substance: CYTARABINE
     Dosage: PHARMACEUTICAL DOSE FORM: 16
     Dates: start: 20200115, end: 20200303
  29. CYTARABINE [Suspect]
     Active Substance: CYTARABINE
     Dosage: 20 MG, QD
     Route: 065
     Dates: start: 20200309
  30. CYTARABINE [Suspect]
     Active Substance: CYTARABINE
     Dosage: 20 MG
     Route: 041
     Dates: start: 20200309, end: 20200311
  31. CYTARABINE [Suspect]
     Active Substance: CYTARABINE
     Dosage: 20 MG
     Route: 065
     Dates: start: 20200309, end: 20200311
  32. CYTARABINE [Suspect]
     Active Substance: CYTARABINE
     Dosage: 20 MG, QD (ON 11 MAR2 020) (PHARMACEUTICAL DOSE FORM: 16) (LAST ADMINISTERED ON 11-MAR-2020,MOST REC
     Route: 040
     Dates: start: 20200309, end: 20200311
  33. CYTARABINE [Suspect]
     Active Substance: CYTARABINE
     Dosage: 20 MG, QD (ON 11 MAR2 020, HE RECEIVED MOST RECENT DOSE OF CYTARABINE PRIOR TO EVENT ONSET, DOSAGE)
     Route: 041
     Dates: start: 20200309, end: 20200311
  34. CYTARABINE [Suspect]
     Active Substance: CYTARABINE
     Dosage: 20 MG (LAST ADMINISTERED ON 11 MAR 2020)
     Route: 065
     Dates: start: 20200309, end: 20200311
  35. CYTARABINE [Suspect]
     Active Substance: CYTARABINE
     Dosage: 20 MG (DOSAGE FORM: 16)
     Dates: start: 20200309, end: 20200311
  36. CYTARABINE [Suspect]
     Active Substance: CYTARABINE
     Dosage: CUMULATIVE DOSE 20
     Route: 041
     Dates: start: 20200115, end: 20200303
  37. CYTARABINE [Suspect]
     Active Substance: CYTARABINE
     Dosage: UNK MOST RECENT DOSE, CUMULATIVE DOSE 1040 MG (DOASGE FORM: 386)
     Route: 065
     Dates: start: 20200311
  38. CYTARABINE [Suspect]
     Active Substance: CYTARABINE
     Dosage: 20 MG, QD, CUMULATIVE DOSE OF 1040 MG (DOSE FORM: 386)
     Route: 041
     Dates: start: 20200309, end: 20200311
  39. CYTARABINE [Suspect]
     Active Substance: CYTARABINE
     Dosage: 20 MG, QD, CUMULATIVE DOSE OF 1040MG (DOSE FORM: 386)
     Route: 041
     Dates: start: 20200115, end: 20200303
  40. CYTARABINE [Suspect]
     Active Substance: CYTARABINE
     Dosage: 20 MG, QD
     Route: 040
     Dates: start: 20200303
  41. CYTARABINE [Suspect]
     Active Substance: CYTARABINE
     Dosage: 60 MG, QD
     Route: 040
     Dates: start: 20200311
  42. CYTARABINE [Suspect]
     Active Substance: CYTARABINE
     Indication: Mantle cell lymphoma
     Dosage: ADDITIONAL INFO: LAST ADMINISTERED ON 11-MAR-2020, MOST RECENT DOSE (DOSE FORM: 386)
     Route: 065
     Dates: start: 20200311
  43. CYTARABINE [Suspect]
     Active Substance: CYTARABINE
     Dosage: 20 MG, QD, LAST ADMINISTERED ON 11-MAR-2020,MOST RECENT DOSE OF CYTARABINE (DOSE FORM: 386)
     Route: 041
     Dates: start: 20200115, end: 20200303
  44. CYTARABINE [Suspect]
     Active Substance: CYTARABINE
     Dosage: 20 MG, QD, ADDITIONAL INFO: LAST ADMINISTERED ON 11-MAR-2020 (DOSE FORM: 386)
     Route: 041
     Dates: start: 20210309, end: 20210311
  45. CYTARABINE [Suspect]
     Active Substance: CYTARABINE
     Dosage: 20 MG, QD, ADDITIONAL INFO: LAST ADMINISTERED ON 11-MAR-2020 (DOSE FORM: 386)
     Route: 041
     Dates: end: 20200303
  46. CYTARABINE [Suspect]
     Active Substance: CYTARABINE
     Dosage: 20 MILLIGRAM DAILY; 20 MG, ONCE DAILY (REPORTED AS MOST RECENT DOSE ON 11-MAR-2020)LAST ADMINISTERE
     Route: 041
     Dates: start: 20200309, end: 20200311
  47. CYTARABINE [Suspect]
     Active Substance: CYTARABINE
     Dosage: 20 MG, QD (DOSE FORM: 230)
     Route: 041
     Dates: start: 20200303
  48. CYTARABINE [Suspect]
     Active Substance: CYTARABINE
     Dosage: 20 MG, QD (DOSE FORM: 230)
     Route: 041
     Dates: start: 20200303
  49. CYTARABINE [Suspect]
     Active Substance: CYTARABINE
     Dosage: 20 MG, QD (DOSE FORM: 230)
     Route: 041
     Dates: start: 20200303
  50. CYTARABINE [Suspect]
     Active Substance: CYTARABINE
     Dosage: 20 MG, QD (DOSE FORM: 230)
     Route: 041
     Dates: start: 20200303
  51. CYTARABINE [Suspect]
     Active Substance: CYTARABINE
     Dosage: 20 MG, QD (DOSE FORM: 230)
     Route: 041
     Dates: start: 20200303
  52. CYTARABINE [Suspect]
     Active Substance: CYTARABINE
     Dosage: 20 MG, QD, MOST RECENT DOSE ON 11/MAR/2020 (DOSE FORM: 230)
     Route: 041
     Dates: start: 20200115, end: 20200303
  53. CYTARABINE [Suspect]
     Active Substance: CYTARABINE
     Dosage: 20 MG, QD, MOST RECENT DOSE ON 11/MAR/2020 (DOSE FORM: 230)
     Route: 041
     Dates: start: 20200115, end: 20200303
  54. CYTARABINE [Suspect]
     Active Substance: CYTARABINE
     Dosage: 20 MG, QD, MOST RECENT DOSE ON 11/MAR/2020 (DOSE FORM: 230)
     Route: 041
     Dates: start: 20200115, end: 20200303
  55. CYTARABINE [Suspect]
     Active Substance: CYTARABINE
     Dosage: 20 MG, QD, MOST RECENT DOSE ON 11/MAR/2020 (DOSE FORM: 230)
     Route: 041
     Dates: start: 20200115, end: 20200303
  56. CYTARABINE [Suspect]
     Active Substance: CYTARABINE
     Dosage: 20 MG, QD, MOST RECENT DOSE ON 11/MAR/2020 (DOSE FORM: 230)
     Route: 041
     Dates: start: 20200115, end: 20200303
  57. CYTARABINE [Suspect]
     Active Substance: CYTARABINE
     Dosage: 20 MG, QD, MOST RECENT DOSE ON 11/MAR/2020 (DOSE FORM: 230)
     Route: 041
     Dates: start: 20200309, end: 20200311
  58. CYTARABINE [Suspect]
     Active Substance: CYTARABINE
     Dosage: 20 MG, QD, MOST RECENT DOSE ON 11/MAR/2020 (DOSE FORM: 230)
     Route: 041
     Dates: start: 20200309, end: 20200311
  59. CYTARABINE [Suspect]
     Active Substance: CYTARABINE
     Dosage: 20 MG, QD, MOST RECENT DOSE ON 11/MAR/2020 (DOSE FORM: 230)
     Route: 041
     Dates: start: 20200309, end: 20200311
  60. CYTARABINE [Suspect]
     Active Substance: CYTARABINE
     Dosage: 20 MG, QD, MOST RECENT DOSE ON 11/MAR/2020 (DOSE FORM: 230)
     Route: 041
     Dates: start: 20200309, end: 20200311
  61. CYTARABINE [Suspect]
     Active Substance: CYTARABINE
     Dosage: 20 MG, QD, MOST RECENT DOSE ON 11/MAR/2020 (DOSE FORM: 230)
     Route: 041
     Dates: start: 20200309, end: 20200311
  62. CYTARABINE [Suspect]
     Active Substance: CYTARABINE
     Dosage: 20 MG, QD, (DOSE FORM: 230) (ON 11 MAR2 020, HE RECEIVED MOST RECENT DOSE OF CYTARABINE PRIOR TO EVE
     Route: 041
     Dates: start: 20210309, end: 20210311
  63. CYTARABINE [Suspect]
     Active Substance: CYTARABINE
     Dosage: 20 MG, QD,(DOSE FORM: 230) (ON 11 MAR2 020, HE RECEIVED MOST RECENT DOSE OF CYTARABINE PRIOR TO EVEN
     Route: 041
     Dates: start: 20210309, end: 20210311
  64. CYTARABINE [Suspect]
     Active Substance: CYTARABINE
     Dosage: 20 MG, QD,(DOSE FORM: 230) (ON 11 MAR2 020, HE RECEIVED MOST RECENT DOSE OF CYTARABINE PRIOR TO EVEN
     Route: 041
     Dates: start: 20210309, end: 20210311
  65. CYTARABINE [Suspect]
     Active Substance: CYTARABINE
     Dosage: 20 MG, QD, (DOSE FORM: 230) (ON 11 MAR2 020, HE RECEIVED MOST RECENT DOSE OF CYTARABINE PRIOR TO EVE
     Route: 041
     Dates: start: 20210309, end: 20210311
  66. CYTARABINE [Suspect]
     Active Substance: CYTARABINE
     Dosage: 20 MG, QD, (DOSE FORM: 230) (ON 11 MAR2 020, HE RECEIVED MOST RECENT DOSE OF CYTARABINE PRIOR TO EVE
     Route: 041
     Dates: start: 20210309, end: 20210311
  67. CYTARABINE [Suspect]
     Active Substance: CYTARABINE
     Dosage: UNK (DOSAGE TEXT: 60 MG)
     Route: 065
     Dates: start: 20200311
  68. CYTARABINE [Suspect]
     Active Substance: CYTARABINE
     Dosage: UNK (DOSAGE TEXT: 60 MG)
     Route: 065
     Dates: start: 20200311
  69. CYTARABINE [Suspect]
     Active Substance: CYTARABINE
     Dosage: UNK (DOSAGE TEXT: 60 MG)
     Route: 065
     Dates: start: 20200311
  70. CYTARABINE [Suspect]
     Active Substance: CYTARABINE
     Dosage: UNK (DOSAGE TEXT: 60 MG)
     Route: 065
     Dates: start: 20200311
  71. CYTARABINE [Suspect]
     Active Substance: CYTARABINE
     Dosage: UNK (DOSAGE TEXT: 60 MG)
     Route: 065
     Dates: start: 20200311
  72. CYTARABINE [Suspect]
     Active Substance: CYTARABINE
     Dosage: 20 MG (DOSE FORM: 16)
     Route: 041
     Dates: start: 20200309, end: 20200311
  73. CYTARABINE [Suspect]
     Active Substance: CYTARABINE
     Dosage: 20 MG (DOSE FORM: 16) (CUMULATIVE DOSE: 20.0 MG)
     Route: 041
     Dates: start: 20200309, end: 20200311
  74. CYTARABINE [Suspect]
     Active Substance: CYTARABINE
     Dosage: 20 MG (DOSE FORM: 16)
     Route: 041
     Dates: start: 20200115, end: 20200303
  75. CYTARABINE [Suspect]
     Active Substance: CYTARABINE
     Dosage: 60 MG (DOSE FORM: 386)
     Route: 041
     Dates: start: 20200311
  76. CYTARABINE [Suspect]
     Active Substance: CYTARABINE
     Dosage: 80 MG (DOSE FORM: 16) (CUMULATIVE DOSE: 80.0 MG)
     Route: 041
     Dates: start: 20200309, end: 20200311
  77. CYTARABINE [Suspect]
     Active Substance: CYTARABINE
     Dosage: 20 MG (DOSE FORM: 16)
     Route: 041
     Dates: start: 20200115, end: 20200303
  78. CYTARABINE [Suspect]
     Active Substance: CYTARABINE
     Dosage: 60 MG (DOSE FORM: 386)
     Route: 065
     Dates: start: 20200311
  79. CYTARABINE [Suspect]
     Active Substance: CYTARABINE
     Dosage: 20 MG (DOSE FORM: 230)
     Route: 041
     Dates: start: 20210309, end: 20210311
  80. CYTARABINE [Suspect]
     Active Substance: CYTARABINE
     Dosage: 20 MG (DOSE FORM: 16)
     Route: 041
     Dates: start: 20200309, end: 20200311
  81. CYTARABINE [Suspect]
     Active Substance: CYTARABINE
     Dosage: MOST RECENT DOSE ON 11/MAR/202016 DF, QD (DOSE FORM: 230) (CUMULATIVE DOSE: 1056.0 DF)
     Route: 041
     Dates: start: 20200115, end: 20200303
  82. CYTARABINE [Suspect]
     Active Substance: CYTARABINE
     Dosage: 16 DF QD (MOST RECENT DOSE ON 11/MAR/2020) (DOSE FORM: 230) (CUMULATIVE DOSE: 192.0 DF)
     Route: 041
     Dates: start: 20200309, end: 20200311
  83. CYTARABINE [Suspect]
     Active Substance: CYTARABINE
     Dosage: 16 DF QD (MOST RECENT DOSE ON 11/MAR/2020) (DOSE FORM: 230) (CUMULATIVE DOSE: 192.0 DF)
     Route: 041
     Dates: start: 20200309, end: 20200311
  84. CYTARABINE [Suspect]
     Active Substance: CYTARABINE
     Dosage: 16 DF QD (MOST RECENT DOSE ON 11/MAR/2020) (DOSE FORM: 230) (CUMULATIVE DOSE: 192.0 DF)
     Route: 041
     Dates: start: 20200309, end: 20200311
  85. CYTARABINE [Suspect]
     Active Substance: CYTARABINE
     Dosage: 16 DF QD (MOST RECENT DOSE ON 11/MAR/2020) (DOSE FORM: 230) (CUMULATIVE DOSE: 192.0 DF)
     Route: 041
     Dates: start: 20200309, end: 20200311
  86. CYTARABINE [Suspect]
     Active Substance: CYTARABINE
     Dosage: 16 DF QD (MOST RECENT DOSE ON 11/MAR/2020) (DOSE FORM: 230) (CUMULATIVE DOSE: 192.0 DF)
     Route: 041
     Dates: start: 20200309, end: 20200311
  87. CYTARABINE [Suspect]
     Active Substance: CYTARABINE
     Dosage: 60 MG (DOSE FORM: 230)
     Route: 041
     Dates: start: 20200311
  88. CYTARABINE [Suspect]
     Active Substance: CYTARABINE
     Dosage: 60 MG (DOSE FORM: 230)
     Route: 041
     Dates: start: 20200311
  89. CYTARABINE [Suspect]
     Active Substance: CYTARABINE
     Dosage: 60 MG (DOSE FORM: 230)
     Route: 041
     Dates: start: 20200311
  90. CYTARABINE [Suspect]
     Active Substance: CYTARABINE
     Dosage: 60 MG (DOSE FORM: 230)
     Route: 041
     Dates: start: 20200311
  91. CYTARABINE [Suspect]
     Active Substance: CYTARABINE
     Dosage: 60 MG (DOSE FORM: 230)
     Route: 041
     Dates: start: 20200311
  92. CYTARABINE [Suspect]
     Active Substance: CYTARABINE
     Indication: Mantle cell lymphoma
     Dosage: 20 MG, QD; ADDITIONAL INFO: LAST ADMINISTERED ON 11-MAR-2020
     Route: 041
     Dates: start: 20210309, end: 20210311
  93. CYTARABINE [Suspect]
     Active Substance: CYTARABINE
     Dosage: 60 MG; ADDITIONAL INFO: LAST ADMINISTERED ON 11-MAR-2020
     Route: 065
     Dates: start: 20200311
  94. CYTARABINE [Suspect]
     Active Substance: CYTARABINE
     Dosage: 20 MG, QD, LAST ADMINISTERED ON 11-MAR-2020,MOST RECENT DOSE OF CYTARABINE
     Route: 041
     Dates: start: 20200115, end: 20200303
  95. CYTARABINE [Suspect]
     Active Substance: CYTARABINE
     Dosage: UNK (LAST ADMINISTERED ON 11-MAR-2020); MOST RECENT DOSE ON 11/MAR/2020
     Route: 041
     Dates: start: 20200309, end: 20200311
  96. CYTARABINE [Suspect]
     Active Substance: CYTARABINE
     Dosage: 20 MG, QD; ADDITIONAL INFO: LAST ADMINISTERED ON 11-MAR-2020
     Route: 041
     Dates: start: 20200303
  97. CYTARABINE [Suspect]
     Active Substance: CYTARABINE
     Dosage: UNK (LAST ADMINISTERED ON 11-MAR-2020); MOST RECENT DOSE ON 11/MAR/2020
     Route: 041
     Dates: start: 20200309, end: 20200311
  98. CYTARABINE [Suspect]
     Active Substance: CYTARABINE
     Dosage: 20 MG
     Route: 041
     Dates: start: 20200309, end: 20200311
  99. CYTARABINE [Suspect]
     Active Substance: CYTARABINE
     Dosage: 20 MG, QD
     Route: 041
     Dates: start: 20210309, end: 20210311
  100. CYTARABINE [Suspect]
     Active Substance: CYTARABINE
     Dosage: 20 MG, QD
     Route: 040
     Dates: start: 20200303
  101. CYTARABINE [Suspect]
     Active Substance: CYTARABINE
     Dosage: 20 MG, QD, LAST ADMINISTERED ON 11-MAR-2020,MOST RECENT DOSE OF CYTARABINE
     Route: 041
     Dates: start: 20200115, end: 20200303
  102. CYTARABINE [Suspect]
     Active Substance: CYTARABINE
     Dosage: UNK (LAST ADMINISTERED ON 11-MAR-2020); MOST RECENT DOSE ON 11/MAR/2020
     Route: 041
     Dates: start: 20200309, end: 20200311
  103. CYTARABINE [Suspect]
     Active Substance: CYTARABINE
     Dosage: 60 MG
     Route: 065
     Dates: start: 20200311
  104. CYTARABINE [Suspect]
     Active Substance: CYTARABINE
     Indication: Mantle cell lymphoma
     Dosage: 20 MG, QD (ON 11 MAR 2020, HE RECEIVED MOST RECENT DOSE OF CYTARABINE PRIOR TO EVENT ONSET)
     Route: 041
     Dates: start: 20200309, end: 20200311
  105. CYTARABINE [Suspect]
     Active Substance: CYTARABINE
     Dosage: 20 MG, QD (ON 11 MAR 2020, HE RECEIVED MOST RECENT DOSE OF CYTARABINE PRIOR TO EVENT ONSET)
     Route: 041
     Dates: start: 20200309, end: 20200311
  106. CYTARABINE [Suspect]
     Active Substance: CYTARABINE
     Dosage: 20 MG, QD (ON 11 MAR 2020, HE RECEIVED MOST RECENT DOSE OF CYTARABINE PRIOR TO EVENT ONSET)
     Route: 041
     Dates: start: 20200309, end: 20200311
  107. CYTARABINE [Suspect]
     Active Substance: CYTARABINE
     Dosage: 20 MG, QD (ON 11 MAR 2020, HE RECEIVED MOST RECENT DOSE OF CYTARABINE PRIOR TO EVENT ONSET)
     Route: 041
     Dates: start: 20200309, end: 20200311
  108. CYTARABINE [Suspect]
     Active Substance: CYTARABINE
     Dosage: 20 MG, QD (ON 11 MAR 2020, HE RECEIVED MOST RECENT DOSE OF CYTARABINE PRIOR TO EVENT ONSET)
     Route: 041
     Dates: start: 20200309, end: 20200311
  109. CYTARABINE [Suspect]
     Active Substance: CYTARABINE
     Dosage: 80 MG
     Route: 041
     Dates: start: 20200309, end: 20200311
  110. CYTARABINE [Suspect]
     Active Substance: CYTARABINE
     Dosage: 80 MG
     Route: 041
     Dates: start: 20200309, end: 20200311
  111. CYTARABINE [Suspect]
     Active Substance: CYTARABINE
     Dosage: 80 MG
     Route: 041
     Dates: start: 20200309, end: 20200311
  112. CYTARABINE [Suspect]
     Active Substance: CYTARABINE
     Dosage: UNK
  113. CYTARABINE [Suspect]
     Active Substance: CYTARABINE
     Indication: Product used for unknown indication
     Dosage: 60 MG, QD
     Route: 040
     Dates: start: 20200311
  114. CYTARABINE [Suspect]
     Active Substance: CYTARABINE
     Dosage: 20 MILLIGRAM
     Dates: start: 20200115, end: 20200303
  115. CYTARABINE [Suspect]
     Active Substance: CYTARABINE
     Dosage: 20 MG, QD (ON 11 MAR2 020
     Route: 040
     Dates: start: 20200309, end: 20200311
  116. CYTARABINE [Suspect]
     Active Substance: CYTARABINE
     Dosage: 20 MG, QD
     Route: 040
     Dates: start: 20200309
  117. CYTARABINE [Suspect]
     Active Substance: CYTARABINE
     Dosage: 20 MG, QD (ON 11 MAR 2020, HE RECEIVED MOST RECENT DOSE OF CYTARABINE PRIOR TO EVENT ONSET
     Route: 040
     Dates: start: 20200309, end: 20200311
  118. CYTARABINE [Suspect]
     Active Substance: CYTARABINE
     Dosage: 20 MG, QD (ON 11 MAR2 020
     Route: 040
     Dates: start: 20210303
  119. CYTARABINE [Suspect]
     Active Substance: CYTARABINE
     Dosage: 16 DOSAGE FORM
     Route: 040
     Dates: start: 20200115, end: 20200303
  120. CYTARABINE [Suspect]
     Active Substance: CYTARABINE
     Dosage: 20 MG, QD
     Route: 040
     Dates: start: 20210309, end: 20210311
  121. CYTARABINE [Suspect]
     Active Substance: CYTARABINE
     Dosage: 20 MG, QD
     Route: 040
     Dates: start: 20210309
  122. CYTARABINE [Suspect]
     Active Substance: CYTARABINE
     Dosage: 20 MG, QD
     Route: 040
     Dates: start: 20200303
  123. CYTARABINE [Suspect]
     Active Substance: CYTARABINE
     Dosage: 20 MG, QD (ON 11 MAR2 020
     Route: 040
     Dates: start: 20200309, end: 20210311
  124. CYTARABINE [Suspect]
     Active Substance: CYTARABINE
     Indication: Mantle cell lymphoma
     Dosage: 20 MG, QD (ON 11 MAR 2020, HE RECEIVED MOST RECENT DOSE OF CYTARABINE PRIOR TO EVENT ONSET
     Route: 040
     Dates: start: 20200309, end: 20200311
  125. BENDAMUSTINE [Suspect]
     Active Substance: BENDAMUSTINE
     Indication: Mantle cell lymphoma
     Dosage: 120 (LAST DOSE ADMINISTERED ON 09-MAR-2020)
     Route: 042
     Dates: start: 20200309, end: 20200309
  126. BENDAMUSTINE [Suspect]
     Active Substance: BENDAMUSTINE
     Dosage: 120
     Route: 041
     Dates: start: 20200309
  127. BENDAMUSTINE [Suspect]
     Active Substance: BENDAMUSTINE
     Dosage: PHARMACEUTICAL DOSAGE FORM: 16 (LAST DOSE ADMINISTERED ON 09-MAR-2020)
     Route: 040
     Dates: start: 20200309, end: 20200309
  128. BENDAMUSTINE [Suspect]
     Active Substance: BENDAMUSTINE
     Dosage: UNK
     Route: 042
     Dates: start: 20200309, end: 20200309
  129. BENDAMUSTINE [Suspect]
     Active Substance: BENDAMUSTINE
     Dosage: UNK (1X/DAY (DOSAGE FORM: 201))
     Route: 041
     Dates: start: 20200309
  130. BENDAMUSTINE [Suspect]
     Active Substance: BENDAMUSTINE
     Dosage: UNK
     Route: 042
     Dates: start: 20200309, end: 20200309
  131. BENDAMUSTINE [Suspect]
     Active Substance: BENDAMUSTINE
     Dosage: UNK, QD (LAST DOSE ADMINISTERED ON 09-MAR-2020)
     Route: 042
     Dates: start: 20200309, end: 20200309
  132. BENDAMUSTINE [Suspect]
     Active Substance: BENDAMUSTINE
     Dosage: UNK UNK, QD (1X/DAY (DOSAGE FORM: 201)
     Route: 041
     Dates: start: 20200309
  133. BENDAMUSTINE [Suspect]
     Active Substance: BENDAMUSTINE
     Dosage: UNK ONCE DAILY (CYCLIC)
     Route: 042
     Dates: start: 20200309, end: 20200309
  134. BENDAMUSTINE [Suspect]
     Active Substance: BENDAMUSTINE
     Indication: Mantle cell lymphoma
     Dosage: UNK, QD (LAST DOSE ADMINISTERED ON 09-MAR-2020)
     Route: 042
     Dates: start: 20200309, end: 20200309
  135. BENDAMUSTINE [Suspect]
     Active Substance: BENDAMUSTINE
     Dosage: UNK (1X/DAY (DOSAGE FORM: 201))
     Route: 041
     Dates: start: 20200309, end: 20200309
  136. BENDAMUSTINE [Suspect]
     Active Substance: BENDAMUSTINE
     Dosage: 1 DF, QD (DOSE FORM OF 356)
     Route: 041
     Dates: start: 20200309, end: 20200309
  137. BENDAMUSTINE [Suspect]
     Active Substance: BENDAMUSTINE
     Dosage: 1 UNK
     Route: 042
     Dates: start: 20200309, end: 20200309
  138. BENDAMUSTINE [Suspect]
     Active Substance: BENDAMUSTINE
     Dosage: 1 UNK
     Route: 042
     Dates: start: 20200309, end: 20200309
  139. BENDAMUSTINE [Suspect]
     Active Substance: BENDAMUSTINE
     Dosage: UNK
  140. BENDAMUSTINE [Suspect]
     Active Substance: BENDAMUSTINE
     Indication: Mantle cell lymphoma
     Dosage: 1 DF, QD (DOSE FORM: 356)
     Route: 041
     Dates: start: 20200309
  141. BENDAMUSTINE [Suspect]
     Active Substance: BENDAMUSTINE
     Dosage: UNK (DOSE FORM: 356)
     Route: 041
     Dates: start: 20210309
  142. BENDAMUSTINE [Suspect]
     Active Substance: BENDAMUSTINE
     Dosage: UNK (DOSE FORM: 230)
     Route: 041
     Dates: start: 20200309, end: 20200309
  143. BENDAMUSTINE [Suspect]
     Active Substance: BENDAMUSTINE
     Dosage: UNK (DOSE FORM: 230)
     Route: 041
     Dates: start: 20200309, end: 20200309
  144. BENDAMUSTINE [Suspect]
     Active Substance: BENDAMUSTINE
     Dosage: 1 DF (DOSE FORM: 230)
     Route: 041
     Dates: start: 20200309, end: 20200309
  145. BENDAMUSTINE [Suspect]
     Active Substance: BENDAMUSTINE
     Dosage: 1 DF (DOSE FORM: 230)
     Route: 041
     Dates: start: 20200309, end: 20200309
  146. BENDAMUSTINE [Suspect]
     Active Substance: BENDAMUSTINE
     Dosage: DOSE FORM: 120
     Route: 041
     Dates: start: 20200309
  147. BENDAMUSTINE [Suspect]
     Active Substance: BENDAMUSTINE
     Dosage: DOSE FORM: 120
     Route: 041
     Dates: start: 20200309, end: 20200309
  148. BENDAMUSTINE [Suspect]
     Active Substance: BENDAMUSTINE
     Dosage: DOSE FORM: 16
     Route: 042
     Dates: start: 20200309, end: 20200309
  149. BENDAMUSTINE [Suspect]
     Active Substance: BENDAMUSTINE
     Dosage: 1 DF (DOSE FORM: 120)
     Route: 041
     Dates: start: 20200309
  150. BENDAMUSTINE [Suspect]
     Active Substance: BENDAMUSTINE
     Dosage: 4 DF
     Route: 042
     Dates: start: 20200309, end: 20200309
  151. BENDAMUSTINE [Suspect]
     Active Substance: BENDAMUSTINE
     Dosage: 1 DF (DOSE FORM: 201) (CUMULATIVE DOSE:365.0 DF)
     Route: 041
     Dates: start: 20210309
  152. BENDAMUSTINE [Suspect]
     Active Substance: BENDAMUSTINE
     Dosage: DOSE FORM: 16 (CUMULATIVE DOSE: 1.0 DF)
     Route: 042
     Dates: start: 20200309, end: 20200309
  153. BENDAMUSTINE [Suspect]
     Active Substance: BENDAMUSTINE
     Dosage: 1 DF, QD (DOSE FORM: 230)
     Route: 041
     Dates: start: 20210309
  154. BENDAMUSTINE [Suspect]
     Active Substance: BENDAMUSTINE
     Dosage: 1 DF, QD (DOSE FORM: 230)
     Route: 041
     Dates: start: 20210309
  155. BENDAMUSTINE [Suspect]
     Active Substance: BENDAMUSTINE
     Dosage: 120 DF, QD (DOSE FORM: 230) (CUMULATIVE DOSE: 1440.0DF)
     Route: 041
     Dates: start: 20200309, end: 20200309
  156. BENDAMUSTINE [Suspect]
     Active Substance: BENDAMUSTINE
     Dosage: 120 DF, QD (DOSE FORM: 230) (CUMULATIVE DOSE: 1440.0DF)
     Route: 041
     Dates: start: 20200309, end: 20200309
  157. BENDAMUSTINE [Suspect]
     Active Substance: BENDAMUSTINE
     Dosage: UNK
     Route: 065
     Dates: start: 20200309
  158. BENDAMUSTINE [Suspect]
     Active Substance: BENDAMUSTINE
     Dosage: 4 DF, QD DOSE FORM 120
     Dates: start: 20200309, end: 20200309
  159. BENDAMUSTINE [Suspect]
     Active Substance: BENDAMUSTINE
     Indication: Product used for unknown indication
     Dosage: 1 DF, QD
     Route: 041
     Dates: start: 20210309
  160. BENDAMUSTINE [Suspect]
     Active Substance: BENDAMUSTINE
     Dosage: 1 DF, QD
     Route: 041
     Dates: start: 20210309
  161. BENDAMUSTINE [Suspect]
     Active Substance: BENDAMUSTINE
     Dosage: 1 DF, QD
     Route: 041
     Dates: start: 20210309
  162. BENDAMUSTINE [Suspect]
     Active Substance: BENDAMUSTINE
     Dosage: 1 DF, QD
     Route: 041
     Dates: start: 20210309
  163. BENDAMUSTINE [Suspect]
     Active Substance: BENDAMUSTINE
     Dosage: 1 DF, QD
     Route: 041
     Dates: start: 20210309
  164. BENDAMUSTINE [Suspect]
     Active Substance: BENDAMUSTINE
     Dosage: 1 DF, QD
     Route: 041
     Dates: start: 20210309
  165. BENDAMUSTINE [Suspect]
     Active Substance: BENDAMUSTINE
     Dosage: 4 DF
     Route: 042
     Dates: start: 20210309, end: 20210309
  166. BENDAMUSTINE [Suspect]
     Active Substance: BENDAMUSTINE
     Dosage: 4 DF
     Route: 042
     Dates: start: 20210309, end: 20210309
  167. BENDAMUSTINE [Suspect]
     Active Substance: BENDAMUSTINE
     Dosage: 4 DF (201)
     Route: 041
     Dates: start: 20210309, end: 20210309
  168. BENDAMUSTINE [Suspect]
     Active Substance: BENDAMUSTINE
     Dosage: 1 DF (201) CUMMULATIVE DOSE 365.0 DF
     Route: 041
     Dates: start: 20210309
  169. BENDAMUSTINE [Suspect]
     Active Substance: BENDAMUSTINE
     Indication: Product used for unknown indication
     Dosage: UNK
     Route: 042
     Dates: start: 20200309
  170. BENDAMUSTINE [Suspect]
     Active Substance: BENDAMUSTINE
     Indication: Product used for unknown indication
     Dosage: UNK
     Route: 042
     Dates: start: 20200309, end: 20200309
  171. BENDAMUSTINE [Suspect]
     Active Substance: BENDAMUSTINE
     Dosage: 1 DF, QD
     Route: 042
     Dates: start: 20200309, end: 20200309
  172. BENDAMUSTINE [Suspect]
     Active Substance: BENDAMUSTINE
     Indication: Product used for unknown indication
     Dosage: 1 DF, QD
     Route: 042
     Dates: start: 20200309, end: 20200309
  173. BENDAMUSTINE [Suspect]
     Active Substance: BENDAMUSTINE
     Indication: Product used for unknown indication
     Dosage: UNK
     Route: 042
     Dates: start: 20200309, end: 20200309
  174. BENDAMUSTINE [Suspect]
     Active Substance: BENDAMUSTINE
     Indication: Product used for unknown indication
     Dosage: UNK (PHARMACEUTICAL DOSE FORM: 120)
     Route: 042
  175. PARSACLISIB [Suspect]
     Active Substance: PARSACLISIB
     Indication: Mantle cell lymphoma
     Dosage: 20 MG, QD (DOSE PRIOR TO THE SERIOUS ADVERSE EVENTS (SAES) WAS TAKEN ON 03MAR2020), 245, INCB 50465
     Route: 048
     Dates: start: 20200115, end: 20200303
  176. PARSACLISIB [Suspect]
     Active Substance: PARSACLISIB
     Dosage: STRENGTH-20MG QD
     Route: 048
     Dates: start: 20200115, end: 20200303
  177. PARSACLISIB [Suspect]
     Active Substance: PARSACLISIB
     Dosage: 20 MG, QD (DOSE PRIOR TO THE SERIOUS ADVERSE EVENTS (SAES) WAS TAKEN ON 03 MAR 2020)
     Route: 048
     Dates: start: 20200115, end: 20200303
  178. PARSACLISIB [Suspect]
     Active Substance: PARSACLISIB
     Indication: Mantle cell lymphoma
     Dosage: 20 MILLIGRAM DAILY;ADDITIONAL INFO: INCB 50465 (MOST RECENT DOSE RECEIVED ON 03-MAR-2020)((DOSE PRIO
     Route: 048
     Dates: start: 20200115, end: 20200303
  179. PARSACLISIB [Suspect]
     Active Substance: PARSACLISIB
     Dosage: 20 MG (PHARMACEUTICAL DOSE FORM: 245)
     Route: 048
     Dates: start: 20200115, end: 20200303
  180. ACETAMINOPHEN [Concomitant]
     Active Substance: ACETAMINOPHEN
     Indication: Cough
     Dosage: UNK
  181. ACETAMINOPHEN [Concomitant]
     Active Substance: ACETAMINOPHEN
     Indication: Malaise
     Dosage: UNK
     Route: 065
     Dates: start: 20200319
  182. ACETAMINOPHEN [Concomitant]
     Active Substance: ACETAMINOPHEN
     Indication: Decreased appetite
     Dosage: UNK
     Dates: start: 20200319
  183. ACETAMINOPHEN [Concomitant]
     Active Substance: ACETAMINOPHEN
     Indication: Malaise
     Dosage: UNK
  184. ACETAMINOPHEN [Concomitant]
     Active Substance: ACETAMINOPHEN
     Dosage: UNK
  185. ACETAMINOPHEN [Concomitant]
     Active Substance: ACETAMINOPHEN
     Dosage: UNK
     Route: 065
     Dates: start: 20200309
  186. ACETAMINOPHEN [Concomitant]
     Active Substance: ACETAMINOPHEN
     Dosage: UNK
     Route: 065
     Dates: start: 20200319
  187. ACETAMINOPHEN [Concomitant]
     Active Substance: ACETAMINOPHEN
     Dosage: UNK
     Dates: start: 20200319
  188. ACETAMINOPHEN [Concomitant]
     Active Substance: ACETAMINOPHEN
     Dosage: UNK
     Dates: start: 20200319
  189. ACETAMINOPHEN [Concomitant]
     Active Substance: ACETAMINOPHEN
     Dosage: UNK
     Dates: start: 20200319
  190. MEROPENEM [Concomitant]
     Active Substance: MEROPENEM
     Indication: Malaise
     Dosage: UNK
  191. MEROPENEM [Concomitant]
     Active Substance: MEROPENEM
     Indication: Cough
     Dosage: UNK
  192. MEROPENEM [Concomitant]
     Active Substance: MEROPENEM
     Indication: Decreased appetite
     Dosage: UNK
     Route: 065
     Dates: start: 20200319
  193. MEROPENEM [Concomitant]
     Active Substance: MEROPENEM
     Indication: Decreased appetite
     Dosage: UNK
  194. MEROPENEM [Concomitant]
     Active Substance: MEROPENEM
     Dosage: UNK
     Route: 065
     Dates: start: 20200309
  195. MEROPENEM [Concomitant]
     Active Substance: MEROPENEM
     Dosage: UNK
     Dates: start: 20200319

REACTIONS (7)
  - Pneumonia [Recovered/Resolved]
  - Neutropenic sepsis [Recovered/Resolved]
  - Bronchitis [Recovered/Resolved]
  - Neutrophil count decreased [Recovered/Resolved]
  - Intentional product use issue [Unknown]
  - Off label use [Unknown]
  - Product use in unapproved indication [Unknown]

NARRATIVE: CASE EVENT DATE: 20200309
